FAERS Safety Report 25877500 (Version 1)
Quarter: 2025Q4

REPORT INFORMATION
  Report Type: Spontaneous
  Country: CN (occurrence: CN)
  Receive Date: 20251003
  Receipt Date: 20251003
  Transmission Date: 20260119
  Serious: Yes (Other)
  Sender: PFIZER
  Company Number: CN-PFIZER INC-PV202500116297

PATIENT
  Age: 71 Year
  Sex: Female

DRUGS (4)
  1. VORICONAZOLE [Suspect]
     Active Substance: VORICONAZOLE
     Indication: Anti-infective therapy
     Dosage: UNK
     Route: 041
     Dates: start: 20250903, end: 20250908
  2. DURLOBACTAM\SULBACTAM [Suspect]
     Active Substance: DURLOBACTAM\SULBACTAM
     Indication: Anti-infective therapy
     Dosage: UNK
     Route: 041
     Dates: start: 20250903, end: 20250908
  3. MEROPENEM [Suspect]
     Active Substance: MEROPENEM
     Indication: Anti-infective therapy
     Dosage: UNK
     Route: 041
     Dates: start: 20250903, end: 20250909
  4. POLYMYXIN [Suspect]
     Active Substance: POLYMYXIN
     Dosage: UNK
     Dates: start: 20250903, end: 20250909

REACTIONS (17)
  - Loss of consciousness [Unknown]
  - Renal failure [Unknown]
  - Hepatic failure [Unknown]
  - Septic shock [Unknown]
  - Bacterial sepsis [Unknown]
  - Body temperature increased [Unknown]
  - Cardiovascular disorder [Unknown]
  - Heart rate increased [Unknown]
  - Blood pressure decreased [Unknown]
  - Oedema [Unknown]
  - Coagulopathy [Unknown]
  - Hypoproteinaemia [Unknown]
  - Peripheral vein thrombosis [Unknown]
  - Respiration abnormal [Unknown]
  - Respiratory rate increased [Unknown]
  - Breath sounds abnormal [Unknown]
  - Rales [Unknown]

NARRATIVE: CASE EVENT DATE: 20250909
